FAERS Safety Report 12100025 (Version 2)
Quarter: 2016Q1

REPORT INFORMATION
  Report Type: Report from Study
  Country: JP (occurrence: JP)
  Receive Date: 20160222
  Receipt Date: 20160223
  Transmission Date: 20160526
  Serious: Yes (Hospitalization, Other)
  Sender: FDA-Public Use
  Company Number: JP-EISAI MEDICAL RESEARCH-EC-2015-007046

PATIENT
  Age: 19 Year
  Sex: Female

DRUGS (26)
  1. INOVELON [Suspect]
     Active Substance: RUFINAMIDE
     Route: 048
     Dates: start: 20131003, end: 20131030
  2. INCREMIN [Concomitant]
     Active Substance: FERRIC PYROPHOSPHATE
  3. INOVELON [Suspect]
     Active Substance: RUFINAMIDE
     Route: 048
     Dates: start: 20141106, end: 20141126
  4. MYOCALM [Concomitant]
     Active Substance: HERBALS\MINERALS\VITAMINS
  5. GASMOTIN [Concomitant]
     Active Substance: MOSAPRIDE CITRATE
  6. HERBAL NOS [Concomitant]
     Active Substance: HERBALS
  7. INOVELON [Suspect]
     Active Substance: RUFINAMIDE
     Route: 048
     Dates: start: 20131128, end: 20140219
  8. INOVELON [Suspect]
     Active Substance: RUFINAMIDE
     Route: 048
     Dates: start: 20141127, end: 20141217
  9. INOVELON [Suspect]
     Active Substance: RUFINAMIDE
     Route: 048
     Dates: start: 20141218
  10. MEILAX [Concomitant]
     Active Substance: ETHYL LOFLAZEPATE
  11. LAC-B [Concomitant]
     Active Substance: BIFIDOBACTERIUM SPP.
  12. INOVELON [Suspect]
     Active Substance: RUFINAMIDE
     Indication: EPILEPSY
     Route: 048
     Dates: start: 20130909, end: 20131002
  13. INOVELON [Suspect]
     Active Substance: RUFINAMIDE
     Route: 048
     Dates: start: 20131031, end: 20131127
  14. KEPPRA [Concomitant]
     Active Substance: LEVETIRACETAM
  15. POTASSIUM BROMIDE [Concomitant]
     Active Substance: POTASSIUM BROMIDE
  16. INOVELON [Suspect]
     Active Substance: RUFINAMIDE
     Indication: LENNOX-GASTAUT SYNDROME
     Route: 048
     Dates: start: 20130801, end: 20130908
  17. DEPAKENE [Concomitant]
     Active Substance: VALPROIC ACID
  18. ZARONTIN [Concomitant]
     Active Substance: ETHOSUXIMIDE
  19. COLONEL [Concomitant]
     Active Substance: CALCIUM POLYCARBOPHIL
  20. MYSTAN [Concomitant]
     Active Substance: CLOBAZAM
  21. L-CARTIN [Concomitant]
     Active Substance: LEVOCARNITINE HYDROCHLORIDE
  22. INOVELON [Suspect]
     Active Substance: RUFINAMIDE
     Route: 048
     Dates: start: 20140220, end: 20140416
  23. INOVELON [Suspect]
     Active Substance: RUFINAMIDE
     Route: 048
     Dates: start: 20140417, end: 20140601
  24. INOVELON [Suspect]
     Active Substance: RUFINAMIDE
     Route: 048
     Dates: start: 20140602, end: 20141029
  25. INOVELON [Suspect]
     Active Substance: RUFINAMIDE
     Route: 048
     Dates: start: 20141030, end: 20141105
  26. FAMOTIDINE. [Concomitant]
     Active Substance: FAMOTIDINE

REACTIONS (2)
  - Status epilepticus [Recovered/Resolved]
  - Pneumonia [Recovered/Resolved]

NARRATIVE: CASE EVENT DATE: 20140731
